FAERS Safety Report 5674320-7 (Version None)
Quarter: 2008Q2

REPORT INFORMATION
  Report Type: 
  Country: None (occurrence: None)
  Receive Date: 20080229
  Receipt Date: 20071220
  Transmission Date: 20081010
  Serious: Yes (Other)
  Sender: FDA-Public Use
  Company Number: 43853

PATIENT
  Age: 41 Year
  Sex: Male
  Weight: 95 kg

DRUGS (14)
  1. CLADRIBINE [Suspect]
     Indication: HAIRY CELL LEUKAEMIA
     Dosage: 0.09 MG/KG DAILY FOR A 7-DAY PRE
     Dates: start: 20071216, end: 20071220
  2. ALLOPURINOL [Concomitant]
  3. XANAX [Concomitant]
  4. DECADRON [Concomitant]
  5. COLACE [Concomitant]
  6. HEPARIN LOCK-FLUSH [Concomitant]
  7. DILAUDID [Concomitant]
  8. LEVAQUIN [Concomitant]
  9. ATIVAN [Concomitant]
  10. ZOFRAN [Concomitant]
  11. MILK OF MAGNESIA [Concomitant]
  12. PROTONIX [Concomitant]
  13. COMPAZINE [Concomitant]
  14. RESTORIL [Concomitant]

REACTIONS (1)
  - NEUTROPENIA [None]
